FAERS Safety Report 18540583 (Version 2)
Quarter: 2021Q1

REPORT INFORMATION
  Report Type: Spontaneous
  Country: FR (occurrence: FR)
  Receive Date: 20201124
  Receipt Date: 20210204
  Transmission Date: 20210419
  Serious: Yes (Other)
  Sender: FDA-Public Use
  Company Number: FR-TEVA-2020-FR-1851507

PATIENT
  Age: 88 Year
  Sex: Male
  Weight: 80 kg

DRUGS (14)
  1. ISUPREL [Suspect]
     Active Substance: ISOPROTERENOL HYDROCHLORIDE
     Indication: ATRIOVENTRICULAR BLOCK
     Dosage: 1 DOSAGE FORMS
     Route: 042
     Dates: start: 20201023
  2. FUROSEMIDE ARROW 40 MG, COMPRIME SECABLE [Suspect]
     Active Substance: FUROSEMIDE
     Indication: HYPERTENSION
     Dosage: 40 MG?FUROSEMIDE ARROW 40 MG, COMPRIME SECABLE
     Route: 048
     Dates: start: 20201020, end: 20201024
  3. XATRAL LP 10 MG, COMPRIME A LIBERATION PROLONGEE [Concomitant]
     Active Substance: ALFUZOSIN
  4. METFORMINE ARROW 500 MG, COMPRIME PELLICULE [Suspect]
     Active Substance: METFORMIN HYDROCHLORIDE
     Indication: DIABETES MELLITUS
     Dosage: 1000 MG
     Route: 048
     Dates: start: 20201020, end: 20201024
  5. DAPTOMYCINE MEDAC [Suspect]
     Active Substance: DAPTOMYCIN
     Indication: INFECTION
     Dosage: 770 MG
     Route: 042
     Dates: start: 20201020, end: 20201022
  6. CALCIPARINE [Concomitant]
     Active Substance: HEPARIN CALCIUM
  7. SODIUM ALGINATE SODIUM BICARBONATE MYLAN [Concomitant]
     Active Substance: SODIUM ALGINATE\SODIUM BICARBONATE
  8. ATORVASTATINE ARROW 10 MG, COMPRIME PELLICULE [Concomitant]
     Active Substance: ATORVASTATIN
  9. LAMALINE [Concomitant]
  10. PERINDOPRIL ARROW 2 MG COMPRIME [Suspect]
     Active Substance: PERINDOPRIL ERBUMINE
     Indication: HYPERTENSION
     Dosage: 2 MG
     Route: 048
     Dates: start: 20201020, end: 20201024
  11. BISOCE 1,25 MG, COMPRIME PELLICULE [Suspect]
     Active Substance: BISOPROLOL FUMARATE
     Indication: HYPERTENSION
     Dosage: 2.5 MG
     Route: 048
     Dates: start: 20201020, end: 20201022
  12. DOLIPRANE [Concomitant]
     Active Substance: ACETAMINOPHEN
  13. ORBENINE [Suspect]
     Active Substance: CLOXACILLIN SODIUM
     Indication: INFECTION
     Dosage: 12 GRAM
     Route: 048
     Dates: start: 20201023, end: 20201026
  14. ELIQUIS [Concomitant]
     Active Substance: APIXABAN

REACTIONS (3)
  - Acute kidney injury [Recovered/Resolved]
  - Bacterial toxaemia [Recovered/Resolved]
  - Nephritis allergic [Recovered/Resolved]

NARRATIVE: CASE EVENT DATE: 20201024
